FAERS Safety Report 4726374-X (Version None)
Quarter: 2005Q3

REPORT INFORMATION
  Report Type: 
  Country: None (occurrence: None)
  Receive Date: 20050727
  Receipt Date: 20050726
  Transmission Date: 20060218
  Serious: Yes (Other)
  Sender: FDA-Public Use
  Company Number: US-BRACCO-BDI-007397

PATIENT
  Age: 9 Year
  Sex: Male

DRUGS (2)
  1. KINEVAC [Suspect]
     Indication: DIAGNOSTIC PROCEDURE
     Route: 050
     Dates: start: 20050726, end: 20050726
  2. TOPROL-XL [Concomitant]
     Route: 050

REACTIONS (1)
  - CONVULSION [None]
